FAERS Safety Report 15018239 (Version 13)
Quarter: 2022Q1

REPORT INFORMATION
  Report Type: Spontaneous
  Country: US (occurrence: US)
  Receive Date: 20180615
  Receipt Date: 20220112
  Transmission Date: 20220423
  Serious: Yes (Hospitalization)
  Sender: FDA-Public Use
  Company Number: US-PFIZER INC-2018243219

PATIENT
  Age: 69 Year
  Sex: Female
  Weight: 100 kg

DRUGS (8)
  1. IBRANCE [Suspect]
     Active Substance: PALBOCICLIB
     Indication: Breast cancer metastatic
     Dosage: 125 MG, CYCLIC (21 DAYS ON AND 7 DAYS OFF)
     Route: 048
     Dates: start: 20180228
  2. IBRANCE [Suspect]
     Active Substance: PALBOCICLIB
     Dosage: 125 MG, 1X/DAY (ONCE A DAY AT NIGHT)
     Route: 048
     Dates: start: 201803
  3. IBRANCE [Suspect]
     Active Substance: PALBOCICLIB
     Dosage: 125 MG, CYCLIC (ONCE DAILY FOR 21 DAYS, THEN OFF FOR 7 DAYS)
     Route: 048
     Dates: start: 201803
  4. IBRANCE [Suspect]
     Active Substance: PALBOCICLIB
     Dosage: 125 MG, CYCLIC (I TAKE ONE PER DAY FOR 21 DAYS)
     Route: 048
  5. IBRANCE [Suspect]
     Active Substance: PALBOCICLIB
     Dosage: 125 MG, DAILY (QUANTITY: 30)
     Route: 048
  6. LETROZOLE [Suspect]
     Active Substance: LETROZOLE
     Indication: Breast cancer metastatic
     Dosage: 1 DF, ONCE DAILY
     Dates: start: 20180228
  7. LETROZOLE [Suspect]
     Active Substance: LETROZOLE
     Indication: Breast cancer stage IV
     Dosage: 2.5 MG, 1X/DAY (IN THE MORNING ONCE DAILY)
     Route: 048
  8. LEVOTHYROXINE [Concomitant]
     Active Substance: LEVOTHYROXINE
     Indication: Thyroid disorder
     Dosage: 137 UG, 1X/DAY
     Route: 048
     Dates: start: 2010

REACTIONS (15)
  - Full blood count abnormal [Recovered/Resolved]
  - Muscular weakness [Unknown]
  - Irritable bowel syndrome [Recovered/Resolved]
  - Cognitive disorder [Recovering/Resolving]
  - Alopecia [Recovered/Resolved]
  - Memory impairment [Not Recovered/Not Resolved]
  - Weight increased [Not Recovered/Not Resolved]
  - Bone disorder [Not Recovered/Not Resolved]
  - Malaise [Unknown]
  - Calcium deficiency [Unknown]
  - Diarrhoea [Unknown]
  - Fear [Unknown]
  - Feeling abnormal [Unknown]
  - Product prescribing error [Unknown]
  - Product dose omission issue [Unknown]

NARRATIVE: CASE EVENT DATE: 20171230
